FAERS Safety Report 9402749 (Version 1)
Quarter: 2013Q3

REPORT INFORMATION
  Report Type: Spontaneous
  Country: US (occurrence: None)
  Receive Date: 20130715
  Receipt Date: 20130715
  Transmission Date: 20140515
  Serious: Yes (Death)
  Sender: FDA-Public Use
  Company Number: None

PATIENT
  Age: 93 Year
  Sex: Male
  Weight: 55.9 kg

DRUGS (2)
  1. NAPROXEN [Suspect]
     Indication: PAIN
     Route: 048
     Dates: start: 20130602
  2. KETOROLAC TROMETHAMINE [Suspect]
     Indication: PAIN
     Route: 030
     Dates: start: 20130602

REACTIONS (1)
  - Gastric haemorrhage [None]
